FAERS Safety Report 9935402 (Version 1)
Quarter: 2014Q1

REPORT INFORMATION
  Report Type: Spontaneous
  Country: US (occurrence: US)
  Receive Date: 20140228
  Receipt Date: 20140228
  Transmission Date: 20141002
  Serious: No
  Sender: FDA-Public Use
  Company Number: US-PFIZER INC-2014056047

PATIENT
  Age: 52 Year
  Sex: 0

DRUGS (17)
  1. ZITHROMAX [Suspect]
     Dosage: UNK
  2. MORPHINE SULFATE [Suspect]
     Dosage: UNK
  3. CLINDAMYCIN HCL [Suspect]
     Dosage: UNK
  4. BARIUM [Suspect]
     Dosage: UNK
  5. DEMEROL [Suspect]
     Dosage: UNK
  6. IODINE [Suspect]
     Dosage: UNK
  7. IODINE [Suspect]
     Dosage: UNK
     Route: 042
  8. ILOSONE [Suspect]
     Dosage: UNK
  9. KEFLEX [Suspect]
     Dosage: UNK
  10. NEOMYCIN [Suspect]
     Dosage: UNK
  11. NAPAN [Suspect]
     Dosage: UNK
  12. THIMEROSAL [Suspect]
     Dosage: UNK
  13. TROVAN [Suspect]
     Dosage: UNK
  14. CEFTIN [Suspect]
     Dosage: UNK
  15. ERYTHROMYCIN [Suspect]
     Dosage: UNK
  16. CODEINE [Suspect]
     Dosage: UNK
  17. DARVON [Suspect]
     Dosage: UNK

REACTIONS (1)
  - Drug hypersensitivity [Unknown]
